FAERS Safety Report 6690504-3 (Version None)
Quarter: 2010Q2

REPORT INFORMATION
  Report Type: 
  Country: None (occurrence: None)
  Receive Date: 20100420
  Receipt Date: 20100420
  Transmission Date: 20101027
  Serious: Yes (Other)
  Sender: FDA-Public Use
  Company Number: None

PATIENT
  Sex: Female
  Weight: 77.1115 kg

DRUGS (1)
  1. KAPIDEX [Suspect]
     Indication: GASTROOESOPHAGEAL REFLUX DISEASE
     Dosage: 1 60 MG CAPSULE 1 OER DAT PO
     Route: 048
     Dates: start: 20000326, end: 20100413

REACTIONS (4)
  - DRUG ERUPTION [None]
  - GASTROINTESTINAL DISORDER [None]
  - PRURITUS [None]
  - URTICARIA [None]
